FAERS Safety Report 19723499 (Version 2)
Quarter: 2021Q3

REPORT INFORMATION
  Report Type: Spontaneous
  Country: US (occurrence: US)
  Receive Date: 20210819
  Receipt Date: 20210824
  Transmission Date: 20211014
  Serious: Yes (Other)
  Sender: FDA-Public Use
  Company Number: US-TEVA-2021-US-1942275

PATIENT
  Age: 9 Decade
  Sex: Male

DRUGS (3)
  1. MINOCYCLINE [Suspect]
     Active Substance: MINOCYCLINE HYDROCHLORIDE
     Indication: GLAUCOMA
     Dosage: 100 MILLIGRAM DAILY;
     Route: 048
  2. TRYPAN BLUE [Suspect]
     Active Substance: TRYPAN BLUE
     Indication: PHOTODYNAMIC DIAGNOSTIC PROCEDURE
     Dosage: APPROXIMATELY 100?200 MICROLITERS
     Route: 065
  3. LATANOPROST. [Suspect]
     Active Substance: LATANOPROST
     Indication: GLAUCOMA
     Route: 065

REACTIONS (4)
  - Retinal pigmentation [Unknown]
  - Cerebral infarction [Unknown]
  - Thyroid disorder [Unknown]
  - Pigmentation disorder [Unknown]
